FAERS Safety Report 10654391 (Version 1)
Quarter: 2014Q4

REPORT INFORMATION
  Report Type: Spontaneous
  Country: US (occurrence: None)
  Receive Date: 20141215
  Receipt Date: 20141215
  Transmission Date: 20150529
  Serious: Yes (Hospitalization)
  Sender: FDA-Public Use
  Company Number: None

PATIENT
  Age: 60 Year
  Sex: Female
  Weight: 58.51 kg

DRUGS (1)
  1. BENICAR HCT [Suspect]
     Active Substance: HYDROCHLOROTHIAZIDE\OLMESARTAN MEDOXOMIL
     Indication: HYPERTENSION
     Dosage: 40/25MG, ONCE DAILY, TAKEN BY MOUTH
     Route: 048
     Dates: start: 20140703, end: 20141110

REACTIONS (12)
  - Asthenia [None]
  - Alopecia [None]
  - Blood cholesterol increased [None]
  - Anaemia [None]
  - Panic attack [None]
  - Hyperuricaemia [None]
  - Blood triglycerides increased [None]
  - Impaired work ability [None]
  - Arthralgia [None]
  - Condition aggravated [None]
  - Headache [None]
  - Paranoia [None]

NARRATIVE: CASE EVENT DATE: 20141112
